FAERS Safety Report 10574395 (Version 2)
Quarter: 2014Q4

REPORT INFORMATION
  Report Type: Not Available
  Country: JP (occurrence: JP)
  Receive Date: 20141110
  Receipt Date: 20141223
  Transmission Date: 20150529
  Serious: Yes (Hospitalization)
  Sender: FDA-Public Use
  Company Number: JP-MUNDIPHARMA DS AND PHARMACOVIGILANCE-GBR-2014-0023794

PATIENT
  Age: 74 Year
  Sex: Female

DRUGS (12)
  1. NOVAMIN                            /00013301/ [Suspect]
     Active Substance: PROCHLORPERAZINE MALEATE
     Indication: NAUSEA
     Dosage: 5 MG, DAILY  (AFTER BREAKFAST)
     Route: 048
     Dates: start: 20141010, end: 20141014
  2. NOVAMIN                            /00013301/ [Suspect]
     Active Substance: PROCHLORPERAZINE MALEATE
     Dosage: 5 MG, PRN
     Route: 048
     Dates: start: 20140908, end: 20140911
  3. JU-KAMA [Concomitant]
     Active Substance: MAGNESIUM OXIDE
     Dosage: UNK
     Route: 048
     Dates: end: 20141018
  4. OXYCODONE HYDROCHLORIDE. [Suspect]
     Active Substance: OXYCODONE HYDROCHLORIDE
     Indication: CANCER PAIN
     Dosage: 5 MG, BID
     Route: 048
     Dates: start: 20140908, end: 20141014
  5. NOVAMIN                            /00013301/ [Suspect]
     Active Substance: PROCHLORPERAZINE MALEATE
     Dosage: 5 MG, TID  (AFTER EACH MEAL)
     Route: 048
     Dates: start: 20140912, end: 20141009
  6. SENNOSIDE                          /00571901/ [Concomitant]
     Active Substance: SENNOSIDES A AND B
     Dosage: UNK
     Route: 048
     Dates: end: 20141018
  7. OMEPRAZOLE. [Concomitant]
     Active Substance: OMEPRAZOLE
     Dosage: UNK
     Route: 048
     Dates: end: 20141018
  8. ZOLPIDEM TARTRATE. [Concomitant]
     Active Substance: ZOLPIDEM TARTRATE
     Dosage: UNK
     Route: 048
     Dates: end: 20141018
  9. GEMCITABINE [Concomitant]
     Active Substance: GEMCITABINE\GEMCITABINE HYDROCHLORIDE
     Dosage: UNK
     Route: 042
     Dates: start: 20141001, end: 20141001
  10. PRIMPERAN [Concomitant]
     Active Substance: METOCLOPRAMIDE HYDROCHLORIDE
     Dosage: UNK
     Dates: start: 20141006, end: 20141006
  11. TS-1 [Suspect]
     Active Substance: GIMERACIL\OTERACIL\TEGAFUR
     Indication: PANCREATIC CARCINOMA
     Dosage: 40 MG, BID
     Route: 048
     Dates: start: 20140924, end: 20141009
  12. OPSO [Concomitant]
     Active Substance: MORPHINE HYDROCHLORIDE
     Dosage: UNK
     Route: 048
     Dates: end: 20141018

REACTIONS (5)
  - Pyrexia [Recovering/Resolving]
  - Nausea [Unknown]
  - Dysphagia [Recovering/Resolving]
  - Extrapyramidal disorder [Recovering/Resolving]
  - Cholangitis [Unknown]

NARRATIVE: CASE EVENT DATE: 20140908
